FAERS Safety Report 17077861 (Version 3)
Quarter: 2020Q2

REPORT INFORMATION
  Report Type: Report from Study
  Country: AU (occurrence: AU)
  Receive Date: 20191126
  Receipt Date: 20200520
  Transmission Date: 20200713
  Serious: Yes (Hospitalization, Other)
  Sender: FDA-Public Use
  Company Number: PHHY2015AU096586

PATIENT
  Age: 45 Year
  Sex: Male
  Weight: 88.5 kg

DRUGS (8)
  1. CEFTRIAXONE. [Concomitant]
     Active Substance: CEFTRIAXONE
     Indication: PRODUCT USED FOR UNKNOWN INDICATION
     Dosage: 1 G, QD
     Route: 042
     Dates: start: 20190123, end: 20190125
  2. ELEUPHRAT [Concomitant]
     Active Substance: BETAMETHASONE DIPROPIONATE
     Indication: PSORIASIS
     Dosage: 0.5 MG, PRN
     Route: 065
     Dates: start: 2000
  3. ZOCOR [Concomitant]
     Active Substance: SIMVASTATIN
     Indication: HYPERCHOLESTEROLAEMIA
     Dosage: 10 MG, QD
     Route: 065
     Dates: start: 20151126
  4. PANADEINE FORTE [Concomitant]
     Active Substance: ACETAMINOPHEN\CODEINE PHOSPHATE
     Indication: PRODUCT USED FOR UNKNOWN INDICATION
     Dosage: UNK UNK, BID
     Route: 065
     Dates: start: 20190225, end: 20190226
  5. GILENYA [Suspect]
     Active Substance: FINGOLIMOD HYDROCHLORIDE
     Dosage: UNK, QOD
     Route: 048
     Dates: start: 20151210
  6. NORAD [Concomitant]
     Indication: PRODUCT USED FOR UNKNOWN INDICATION
     Dosage: UNK
     Route: 065
  7. GILENYA [Suspect]
     Active Substance: FINGOLIMOD HYDROCHLORIDE
     Indication: MULTIPLE SCLEROSIS
     Dosage: 0.5 MG, QD
     Route: 048
     Dates: start: 20150618, end: 20151210
  8. ZOCOR [Concomitant]
     Active Substance: SIMVASTATIN
     Dosage: 20 MG, QD
     Route: 065
     Dates: start: 20170817

REACTIONS (45)
  - Transaminases increased [Unknown]
  - High density lipoprotein decreased [Unknown]
  - Urinary incontinence [Recovered/Resolved]
  - Headache [Unknown]
  - Vitamin D deficiency [Recovered/Resolved]
  - Hypotension [Unknown]
  - Nephrolithiasis [Recovering/Resolving]
  - Lymphocyte count decreased [Unknown]
  - Tinea pedis [Unknown]
  - Defaecation urgency [Unknown]
  - Injury [Recovering/Resolving]
  - Diarrhoea [Unknown]
  - Chromaturia [Unknown]
  - Blood cholesterol increased [Unknown]
  - Hot flush [Unknown]
  - Prescribed underdose [Unknown]
  - Escherichia infection [Recovered/Resolved]
  - Flank pain [Unknown]
  - Infection [Recovering/Resolving]
  - Micturition urgency [Unknown]
  - Urosepsis [Recovered/Resolved]
  - Pyrexia [Recovered/Resolved]
  - Nasopharyngitis [Unknown]
  - Dizziness [Unknown]
  - Mobility decreased [Recovered/Resolved]
  - Myalgia [Unknown]
  - Sepsis [Recovering/Resolving]
  - Liver function test increased [Unknown]
  - Urinary tract infection [Recovered/Resolved]
  - Anxiety [Unknown]
  - Fall [Recovered/Resolved]
  - Lethargy [Unknown]
  - Tachycardia [Unknown]
  - Delirium [Unknown]
  - Hydronephrosis [Recovered/Resolved]
  - Haematuria [Recovering/Resolving]
  - Erectile dysfunction [Not Recovered/Not Resolved]
  - Chills [Unknown]
  - Skin lesion [Unknown]
  - Metabolic syndrome [Not Recovered/Not Resolved]
  - Hypertension [Not Recovered/Not Resolved]
  - Seborrhoeic keratosis [Not Recovered/Not Resolved]
  - White blood cell count decreased [Unknown]
  - Cystitis [Recovered/Resolved]
  - Paraesthesia [Not Recovered/Not Resolved]

NARRATIVE: CASE EVENT DATE: 20150619
